FAERS Safety Report 16702120 (Version 3)
Quarter: 2019Q3

REPORT INFORMATION
  Report Type: Spontaneous
  Country: US (occurrence: US)
  Receive Date: 20190814
  Receipt Date: 20190930
  Transmission Date: 20191004
  Serious: No
  Sender: FDA-Public Use
  Company Number: US-PFIZER INC-2019344193

PATIENT
  Age: 52 Year
  Sex: Female

DRUGS (8)
  1. XELJANZ [Suspect]
     Active Substance: TOFACITINIB CITRATE
     Indication: COLITIS ULCERATIVE
     Dosage: 10 MG, 2X/DAY
     Route: 048
     Dates: start: 20190701
  2. XELJANZ [Suspect]
     Active Substance: TOFACITINIB CITRATE
     Dosage: 10 MG, 2X/DAY
     Route: 048
     Dates: start: 20190716
  3. TRIAMTERENE AND HYDROCHLOROTHIAZID [Concomitant]
     Active Substance: HYDROCHLOROTHIAZIDE\TRIAMTERENE
     Dosage: 1 DF, DAILY [TRIAMTERENE:37.5 MG -HYDROCHLOROTHIAZIDE 25 MG]
     Route: 048
  4. FLORASTOR [LACTOBACILLUS ACIDOPHILUS] [Concomitant]
     Dosage: 250 MG, UNK
     Route: 048
  5. PRENATAL [FOLIC ACID;IRON] [Concomitant]
     Dosage: 1 DF, DAILY [FOLIC ACID: 14MG - IRON: 0.4MG]
     Route: 048
     Dates: start: 20190121
  6. XELJANZ [Suspect]
     Active Substance: TOFACITINIB CITRATE
     Dosage: 5 MG, 2X/DAY
     Route: 048
     Dates: start: 20190709
  7. VSL#3 [Concomitant]
     Active Substance: PROBIOTICS NOS
     Dosage: 1 DF, DAILY
     Route: 048
     Dates: start: 20190304
  8. ELIQUIS [Concomitant]
     Active Substance: APIXABAN
     Indication: DEEP VEIN THROMBOSIS
     Dosage: 5 MG, 2X/DAY
     Route: 048

REACTIONS (3)
  - Off label use [Unknown]
  - Alopecia [Recovered/Resolved]
  - Product use issue [Unknown]
